FAERS Safety Report 9235073 (Version 1)
Quarter: 2013Q2

REPORT INFORMATION
  Report Type: Spontaneous
  Country: MX (occurrence: MX)
  Receive Date: 20130416
  Receipt Date: 20130416
  Transmission Date: 20140414
  Serious: Yes (Hospitalization, Other)
  Sender: FDA-Public Use
  Company Number: MX-ABBOTT-13P-107-1076854-00

PATIENT
  Age: 26 Year
  Sex: Female

DRUGS (2)
  1. HUMIRA [Suspect]
     Indication: CROHN^S DISEASE
  2. HUMIRA [Suspect]
     Indication: GASTROINTESTINAL FISTULA

REACTIONS (5)
  - Hydrocholecystis [Unknown]
  - Headache [Recovered/Resolved]
  - Pyrexia [Unknown]
  - Blood lactate dehydrogenase increased [Unknown]
  - Cholelithiasis [Unknown]
